FAERS Safety Report 8009895-6 (Version None)
Quarter: 2011Q4

REPORT INFORMATION
  Report Type: 
  Country: None (occurrence: None)
  Receive Date: 20111221
  Receipt Date: 20111205
  Transmission Date: 20120403
  Serious: Yes (Death, Other)
  Sender: FDA-Public Use
  Company Number: 2011AP002844

PATIENT
  Age: 69 Year
  Sex: Female

DRUGS (6)
  1. AZITHROMYCIN [Concomitant]
  2. AMOXICILLIN + CLAVULANATE POTASSIUM [Concomitant]
  3. COLCHICINE [Suspect]
     Indication: PERICARDITIS
     Dosage: 0.6 MG; BID; PO
     Route: 048
  4. CEFTRIAXONE [Concomitant]
  5. AMIODARONE HCL [Suspect]
     Indication: ATRIAL FIBRILLATION
     Dosage: ;IV
     Route: 042
  6. AMIODARONE HYDROCHLORIDE [Suspect]
     Indication: ATRIAL FIBRILLATION
     Dosage: 400 MG;TID;PO
     Route: 048

REACTIONS (10)
  - CARDIOGENIC SHOCK [None]
  - TOXICITY TO VARIOUS AGENTS [None]
  - DIARRHOEA [None]
  - LEUKOCYTOSIS [None]
  - NAUSEA [None]
  - CARDIAC ARREST [None]
  - MULTI-ORGAN FAILURE [None]
  - VOMITING [None]
  - POTENTIATING DRUG INTERACTION [None]
  - LEUKOPENIA [None]
